FAERS Safety Report 18095571 (Version 1)
Quarter: 2020Q3

REPORT INFORMATION
  Report Type: Spontaneous
  Country: US (occurrence: US)
  Receive Date: 20200730
  Receipt Date: 20200730
  Transmission Date: 20201103
  Serious: No
  Sender: FDA-Public Use
  Company Number: US-EMERGENT BIOSOLUTIONS,-20000431SP

PATIENT

DRUGS (4)
  1. NARCAN [Suspect]
     Active Substance: NALOXONE HYDROCHLORIDE
     Dosage: 4 MILLIGRAM
     Route: 045
     Dates: start: 20200703, end: 20200703
  2. HEROIN [Suspect]
     Active Substance: DIAMORPHINE
     Dosage: UNK MILLIGRAM
     Route: 065
     Dates: start: 20200703, end: 20200703
  3. NARCAN [Suspect]
     Active Substance: NALOXONE HYDROCHLORIDE
     Indication: OVERDOSE
     Dosage: 4 MILLIGRAM
     Route: 045
     Dates: start: 20200703, end: 20200703
  4. METHADONE [Concomitant]
     Active Substance: METHADONE HYDROCHLORIDE
     Route: 065

REACTIONS (1)
  - Feeling of body temperature change [Unknown]

NARRATIVE: CASE EVENT DATE: 20200703
